FAERS Safety Report 20913746 (Version 1)
Quarter: 2022Q2

REPORT INFORMATION
  Report Type: Spontaneous
  Country: US (occurrence: US)
  Receive Date: 20220604
  Receipt Date: 20220604
  Transmission Date: 20220720
  Serious: Yes (Hospitalization)
  Sender: FDA-Public Use
  Company Number: US-AMGEN-USASP2022093497

PATIENT
  Age: 65 Year
  Sex: Female
  Weight: 97.4 kg

DRUGS (1)
  1. MVASI [Suspect]
     Active Substance: BEVACIZUMAB-AWWB
     Indication: Brain neoplasm malignant
     Dosage: 1500 MILLIGRAM
     Route: 065
     Dates: start: 20210513

REACTIONS (1)
  - Urinary tract infection [Unknown]
